FAERS Safety Report 21368280 (Version 3)
Quarter: 2022Q4

REPORT INFORMATION
  Report Type: Report from Study
  Country: US (occurrence: US)
  Receive Date: 20220923
  Receipt Date: 20221118
  Transmission Date: 20230113
  Serious: Yes (Other)
  Sender: FDA-Public Use
  Company Number: US-ABBVIE-4128605

PATIENT
  Age: 78 Year
  Sex: Female

DRUGS (5)
  1. HUMIRA [Suspect]
     Active Substance: ADALIMUMAB
     Indication: Psoriatic arthropathy
     Dosage: CITRATE FREE
     Route: 058
  2. HUMIRA [Suspect]
     Active Substance: ADALIMUMAB
     Indication: Psoriasis
  3. HUMIRA [Suspect]
     Active Substance: ADALIMUMAB
     Indication: Psoriasis
  4. Pfizer/BioNTech [Concomitant]
     Indication: COVID-19 immunisation
     Dosage: ONCE
     Route: 030
  5. Pfizer/BioNTech [Concomitant]
     Indication: COVID-19 immunisation
     Dosage: BOOSTER DOSE?ONCE
     Route: 030

REACTIONS (12)
  - Stomal hernia [Unknown]
  - Fatigue [Unknown]
  - Pruritus [Unknown]
  - Skin atrophy [Unknown]
  - Gait disturbance [Unknown]
  - Back disorder [Unknown]
  - Fall [Unknown]
  - Arthritis [Unknown]
  - Erythema [Unknown]
  - Bronchitis [Unknown]
  - Contusion [Unknown]
  - Scratch [Unknown]

NARRATIVE: CASE EVENT DATE: 20211201
